FAERS Safety Report 8190082-6 (Version None)
Quarter: 2012Q1

REPORT INFORMATION
  Report Type: 
  Country: None (occurrence: None)
  Receive Date: 20120307
  Receipt Date: 20120307
  Transmission Date: 20120608
  Serious: Yes (Other)
  Sender: FDA-Public Use
  Company Number: None

PATIENT
  Age: 42 Year
  Sex: Female
  Weight: 104.32 kg

DRUGS (1)
  1. BYSTOLIC [Suspect]
     Indication: HYPERTENSION
     Dosage: 5MG
     Route: 048
     Dates: start: 20120112, end: 20120305

REACTIONS (3)
  - ANGINA PECTORIS [None]
  - DYSPNOEA [None]
  - OEDEMA PERIPHERAL [None]
